FAERS Safety Report 9512489 (Version 2)
Quarter: 2013Q3

REPORT INFORMATION
  Report Type: Report from Study
  Country: US (occurrence: US)
  Receive Date: 20130910
  Receipt Date: 20130917
  Transmission Date: 20140515
  Serious: Yes (Life-Threatening, Hospitalization)
  Sender: FDA-Public Use
  Company Number: US-PFIZER INC-2013254690

PATIENT
  Age: 54 Year
  Sex: Male
  Weight: 96.15 kg

DRUGS (10)
  1. TOFACITINIB CITRATE [Suspect]
     Indication: RHEUMATOID ARTHRITIS
     Dosage: 10 MG, BID
     Route: 048
     Dates: start: 20100924, end: 20130722
  2. FOLIC ACID [Concomitant]
     Indication: RHEUMATOID ARTHRITIS
     Dosage: 1 MG, QD
     Route: 048
     Dates: start: 20101026
  3. MORPHINE SULFATE ER [Concomitant]
     Indication: PAIN
     Dosage: 15 MG, PRN
     Route: 048
     Dates: start: 20101026
  4. PROMETHAZINE DM [Concomitant]
     Indication: COUGH
     Dosage: 7 ML, PRN
     Route: 048
     Dates: start: 20121016, end: 20121024
  5. GUAIFENESIN [Concomitant]
     Indication: NASAL CONGESTION
     Dosage: 400 MG, PRN
     Route: 048
     Dates: start: 20120108, end: 20120427
  6. LORCET [Concomitant]
     Indication: RHEUMATOID ARTHRITIS
     Dosage: HYDROCODONE 10 MG, PARACETAMOL 650 MG, PRN
     Route: 048
     Dates: start: 20120123
  7. METHOTREXATE [Concomitant]
     Indication: RHEUMATOID ARTHRITIS
     Dosage: 20 MG, QW
     Route: 048
     Dates: start: 20101026
  8. RAPAFLO [Concomitant]
     Indication: URINARY INCONTINENCE
     Dosage: 8 MG, QD
     Route: 048
     Dates: start: 20120501
  9. CITALOPRAM [Concomitant]
     Indication: ANTIDEPRESSANT THERAPY
     Dosage: 40 MG, QD
     Route: 048
     Dates: start: 20121016
  10. LOSARTAN [Concomitant]
     Indication: HYPERTENSION
     Dosage: 50 MG, QD
     Route: 048
     Dates: start: 20120717

REACTIONS (2)
  - Pulmonary embolism [Unknown]
  - Pneumonia [Unknown]
